APPROVED DRUG PRODUCT: FLUDEOXYGLUCOSE F18
Active Ingredient: FLUDEOXYGLUCOSE F-18
Strength: 20-200mCi/ML
Dosage Form/Route: INJECTABLE;INTRAVENOUS
Application: A210265 | Product #001
Applicant: UNIV TEXAS SOUTHWESTERN MEDCTR
Approved: Feb 6, 2020 | RLD: No | RS: No | Type: DISCN